FAERS Safety Report 9051539 (Version 1)
Quarter: 2013Q1

REPORT INFORMATION
  Report Type: Spontaneous
  Country: US (occurrence: SG)
  Receive Date: 20130207
  Receipt Date: 20130207
  Transmission Date: 20140127
  Serious: Yes (Hospitalization)
  Sender: FDA-Public Use
  Company Number: US-009507513-1302SGP000018

PATIENT
  Age: 60 Year
  Sex: Male

DRUGS (3)
  1. POSACONAZOLE [Suspect]
     Dosage: 200 MG, THREE TIMES DAILY
     Route: 048
  2. IDARUBICIN HYDROCHLORIDE [Concomitant]
  3. CYTARABINE [Concomitant]

REACTIONS (1)
  - Drug resistance [Unknown]
